FAERS Safety Report 13295545 (Version 2)
Quarter: 2017Q1

REPORT INFORMATION
  Report Type: Spontaneous
  Country: US (occurrence: US)
  Receive Date: 20170303
  Receipt Date: 20170314
  Transmission Date: 20170428
  Serious: Yes (Other)
  Sender: FDA-Public Use
  Company Number: US-BEH-2017078556

PATIENT
  Age: 71 Year
  Sex: Female
  Weight: 61.22 kg

DRUGS (32)
  1. EPINEPHRINE. [Concomitant]
     Active Substance: EPINEPHRINE
  2. VITAMIN B12 [Concomitant]
     Active Substance: CYANOCOBALAMIN
  3. VICODIN [Concomitant]
     Active Substance: ACETAMINOPHEN\HYDROCODONE BITARTRATE
  4. COCONUT OIL [Concomitant]
     Active Substance: COCONUT OIL
  5. PRAVASTATIN. [Concomitant]
     Active Substance: PRAVASTATIN
  6. DILAUDID [Concomitant]
     Active Substance: HYDROMORPHONE HYDROCHLORIDE
  7. VITAMIN D                          /00107901/ [Concomitant]
     Active Substance: ERGOCALCIFEROL
  8. ZETIA [Concomitant]
     Active Substance: EZETIMIBE
  9. DIPHENHYDRAMINE. [Concomitant]
     Active Substance: DIPHENHYDRAMINE
  10. CELEBREX [Concomitant]
     Active Substance: CELECOXIB
  11. LEVOTHYROXINE. [Concomitant]
     Active Substance: LEVOTHYROXINE
  12. CALCIUM [Concomitant]
     Active Substance: CALCIUM
  13. ASPIRIN. [Concomitant]
     Active Substance: ASPIRIN
  14. VANCOMYCIN [Concomitant]
     Active Substance: VANCOMYCIN
  15. ATACAND [Concomitant]
     Active Substance: CANDESARTAN CILEXETIL
  16. HIZENTRA [Suspect]
     Active Substance: HUMAN IMMUNOGLOBULIN G
     Indication: IMMUNODEFICIENCY COMMON VARIABLE
     Dosage: 8 G, QW
     Route: 058
     Dates: start: 20120411
  17. PROBIOTIC                          /06395501/ [Concomitant]
     Active Substance: BIFIDOBACTERIUM ANIMALIS SUBSP. LACTIS
  18. LIDOCAINE/PRILOCAINE [Concomitant]
     Active Substance: LIDOCAINE\PRILOCAINE
  19. MULTIVITAMIN                       /00097801/ [Concomitant]
     Active Substance: VITAMINS
  20. SERTRALINE [Concomitant]
     Active Substance: SERTRALINE HYDROCHLORIDE
  21. HIZENTRA [Suspect]
     Active Substance: HUMAN IMMUNOGLOBULIN G
     Dosage: UNK
     Route: 058
  22. KERATIN [Concomitant]
     Active Substance: KERATIN
  23. VITAMIN C [Concomitant]
     Active Substance: ASCORBIC ACID
  24. PREDNISONE. [Concomitant]
     Active Substance: PREDNISONE
  25. NEXIUM [Concomitant]
     Active Substance: ESOMEPRAZOLE MAGNESIUM
  26. TOPIRAMATE. [Concomitant]
     Active Substance: TOPIRAMATE
  27. LIDOCAINE. [Concomitant]
     Active Substance: LIDOCAINE
  28. TYLENOL EXTRA STRENGTH [Concomitant]
     Active Substance: ACETAMINOPHEN
  29. BETAMETHASONE. [Concomitant]
     Active Substance: BETAMETHASONE
  30. GABAPENTIN. [Concomitant]
     Active Substance: GABAPENTIN
  31. LABETALOL [Concomitant]
     Active Substance: LABETALOL\LABETALOL HYDROCHLORIDE
  32. PRAMIPEXOLE. [Concomitant]
     Active Substance: PRAMIPEXOLE

REACTIONS (3)
  - Cerebrovascular accident [Unknown]
  - Headache [Unknown]
  - Spinal fusion surgery [Unknown]

NARRATIVE: CASE EVENT DATE: 201610
